FAERS Safety Report 20415306 (Version 1)
Quarter: 2022Q1

REPORT INFORMATION
  Report Type: Spontaneous
  Country: BR (occurrence: BR)
  Receive Date: 20220202
  Receipt Date: 20220202
  Transmission Date: 20220423
  Serious: Yes (Hospitalization, Other)
  Sender: FDA-Public Use
  Company Number: BR-ALVOGEN-2022-ALVOGEN-118278

PATIENT
  Age: 76 Year
  Sex: Male

DRUGS (2)
  1. ATENOLOL [Suspect]
     Active Substance: ATENOLOL
     Indication: Essential hypertension
     Dosage: TWICE DAILY
  2. AMLODIPINE [Concomitant]
     Active Substance: AMLODIPINE BESYLATE
     Indication: Essential hypertension
     Dosage: TWICE DAILY

REACTIONS (1)
  - BRASH syndrome [Recovered/Resolved]
